FAERS Safety Report 5893425-9 (Version None)
Quarter: 2008Q3

REPORT INFORMATION
  Report Type: 
  Country: None (occurrence: None)
  Receive Date: 20080922
  Receipt Date: 20080922
  Transmission Date: 20090109
  Serious: Yes (Life-Threatening, Hospitalization)
  Sender: FDA-Public Use
  Company Number: None

PATIENT
  Age: 51 Year
  Sex: Male
  Weight: 113 kg

DRUGS (1)
  1. ADENOSINE [Suspect]
     Indication: SURGERY
     Dosage: 46 MG ONCE IV
     Dates: start: 20080912, end: 20080912

REACTIONS (2)
  - BRONCHOSPASM [None]
  - LARYNGOSPASM [None]
